FAERS Safety Report 6760676-0 (Version None)
Quarter: 2010Q2

REPORT INFORMATION
  Report Type: 
  Country: None (occurrence: None)
  Receive Date: 20100608
  Receipt Date: 20100527
  Transmission Date: 20101027
  Serious: Yes (Hospitalization)
  Sender: FDA-Public Use
  Company Number: CA-PFIZER INC-2010037595

PATIENT
  Age: 81 Year
  Sex: Male
  Weight: 64.4 kg

DRUGS (20)
  1. BLINDED *NO SUBJECT DRUG [Suspect]
     Indication: PROSTATE CANCER
     Dosage: 37.5 MG, 1X/DAY
     Route: 048
     Dates: start: 20100301
  2. BLINDED *PLACEBO [Suspect]
     Indication: PROSTATE CANCER
     Dosage: 37.5 MG, 1X/DAY
     Route: 048
     Dates: start: 20100301
  3. SUNITINIB MALATE [Suspect]
     Indication: PROSTATE CANCER
     Dosage: 37.5 MG, 1X/DAY
     Route: 048
     Dates: start: 20100301
  4. *PREDNISONE [Suspect]
     Indication: PROSTATE CANCER
     Dosage: 5 MG, 2X/DAY
     Route: 048
     Dates: start: 20100301
  5. HYDROCHLOROTHIAZIDE [Concomitant]
     Indication: HYPERTENSION
     Dosage: 12.5 MG, 1X/DAY
     Route: 048
     Dates: start: 20020101
  6. COVERSYL [Concomitant]
     Indication: HYPERTENSION
     Dosage: 8 MG, 1X/DAY
     Route: 048
     Dates: start: 20020101
  7. NEXIUM [Concomitant]
     Indication: PROPHYLAXIS AGAINST GASTROINTESTINAL ULCER
     Dosage: 40 MG, 1X/DAY
     Route: 048
     Dates: start: 20020101
  8. CARBOCAL D 400 [Concomitant]
     Indication: OSTEOPOROSIS PROPHYLAXIS
     Dosage: 500 MG, 2X/DAY
     Route: 048
     Dates: start: 20020101
  9. ALENDRONATE SODIUM [Concomitant]
     Indication: OSTEOPOROSIS PROPHYLAXIS
     Dosage: 70 MG, WEEKLY
     Route: 048
     Dates: start: 20020101
  10. PREDNISONE [Concomitant]
     Indication: PROPHYLAXIS
     Dosage: 5 MG, 2X/DAY
     Route: 048
     Dates: start: 20090714
  11. SUPREFACT [Concomitant]
     Indication: PROSTATE CANCER
     Dosage: 9.45 MG, EVERY 3 MONTHS
     Route: 058
     Dates: start: 19980930
  12. CELEBREX [Concomitant]
     Indication: ARTHRALGIA
     Dosage: 200 MG, AS NEEDED
     Route: 048
     Dates: start: 20020101
  13. PLAVIX [Concomitant]
     Indication: TRANSIENT ISCHAEMIC ATTACK
     Dosage: 75 MG, 1X/DAY
     Route: 048
     Dates: start: 20040101, end: 20100321
  14. PLAVIX [Concomitant]
     Dosage: 75 MG, 1X/DAY
     Route: 048
     Dates: start: 20100323, end: 20100326
  15. PLAVIX [Concomitant]
     Dosage: 75 MG, 1X/DAY
     Route: 048
     Dates: start: 20100331, end: 20100413
  16. EZETROL [Concomitant]
     Indication: BLOOD CHOLESTEROL
     Dosage: 10 MG, 1X/DAY
     Route: 048
     Dates: start: 19900101
  17. CRESTOR [Concomitant]
     Indication: BLOOD CHOLESTEROL
     Dosage: 10 MG, 1X/DAY
     Route: 048
     Dates: start: 19900101
  18. TYLENOL [Concomitant]
     Indication: BACK PAIN
     Dosage: 500 MG, AS NEEDED
     Route: 048
     Dates: start: 20100216
  19. FRAGMIN [Concomitant]
     Indication: THROMBOSIS PROPHYLAXIS
     Dosage: 5000 IU, 1X/DAY
     Route: 058
     Dates: start: 20100219, end: 20100301
  20. CITALOPRAM [Concomitant]
     Indication: PROPHYLAXIS
     Dosage: 10 MG, 1X/DAY
     Route: 048
     Dates: start: 20020101

REACTIONS (2)
  - HAEMATURIA [None]
  - HYPONATRAEMIA [None]
